FAERS Safety Report 6475531-3 (Version None)
Quarter: 2009Q4

REPORT INFORMATION
  Report Type: 
  Country: None (occurrence: None)
  Receive Date: 20091204
  Receipt Date: 20091202
  Transmission Date: 20100525
  Serious: Yes (Death)
  Sender: FDA-Public Use
  Company Number: PHHY2009JP53293

PATIENT
  Sex: Male

DRUGS (5)
  1. ZOLEDRONATE T29581+ [Suspect]
     Indication: PROSTATE CANCER
     Dosage: 4 MG, QMO
     Route: 042
     Dates: start: 20070712, end: 20070907
  2. OXYCONTIN [Concomitant]
     Dosage: 20 MG, UNK
     Route: 048
     Dates: start: 20070713, end: 20070729
  3. NOVAMIN [Concomitant]
     Dosage: 15 MG, UNK
     Route: 048
     Dates: start: 20070713, end: 20070726
  4. DUROTEP [Concomitant]
     Dosage: 2.5 MG, UNK
     Dates: start: 20070802
  5. VEEN-3G [Concomitant]
     Dosage: 500 MG, UNK
     Route: 042
     Dates: start: 20070712, end: 20070921

REACTIONS (2)
  - BLOOD LACTATE DEHYDROGENASE INCREASED [None]
  - DEATH [None]
